FAERS Safety Report 20995435 (Version 1)
Quarter: 2022Q2

REPORT INFORMATION
  Report Type: Report from Study
  Country: US (occurrence: US)
  Receive Date: 20220622
  Receipt Date: 20220622
  Transmission Date: 20220721
  Serious: Yes (Other)
  Sender: FDA-Public Use
  Company Number: US-BIOGEN-2022BI01133429

PATIENT
  Sex: Male

DRUGS (2)
  1. TYSABRI [Suspect]
     Active Substance: NATALIZUMAB
     Indication: Multiple sclerosis
     Dates: start: 20080205, end: 20120824
  2. TYSABRI [Suspect]
     Active Substance: NATALIZUMAB
     Dates: start: 20140123, end: 20150928

REACTIONS (6)
  - Blindness [Unknown]
  - Gait inability [Unknown]
  - Hemiparesis [Unknown]
  - Amnesia [Unknown]
  - Temperature intolerance [Unknown]
  - Muscle spasms [Unknown]
